FAERS Safety Report 8234516-7 (Version None)
Quarter: 2012Q1

REPORT INFORMATION
  Report Type: 
  Country: None (occurrence: None)
  Receive Date: 20120326
  Receipt Date: 20120315
  Transmission Date: 20120608
  Serious: Yes (Other)
  Sender: FDA-Public Use
  Company Number: JP-ROCHE-1023740

PATIENT
  Age: 82 Year
  Sex: Male

DRUGS (6)
  1. RANIBIZUMAB [Suspect]
     Route: 050
     Dates: start: 20090915
  2. RANIBIZUMAB [Suspect]
     Dosage: REGIMEN:2
     Route: 050
     Dates: start: 20090710
  3. LEVOFLOXACIN [Concomitant]
  4. RANIBIZUMAB [Suspect]
     Indication: AGE-RELATED MACULAR DEGENERATION
     Route: 050
     Dates: start: 20090619
  5. RANIBIZUMAB [Suspect]
     Dosage: REGIMEN:3
     Route: 050
     Dates: start: 20090814
  6. TRIAMCINOLONE [Concomitant]

REACTIONS (1)
  - RETINAL HAEMORRHAGE [None]
